FAERS Safety Report 7620449-3 (Version None)
Quarter: 2011Q3

REPORT INFORMATION
  Report Type: 
  Country: None (occurrence: None)
  Receive Date: 20110719
  Receipt Date: 20110706
  Transmission Date: 20111222
  Serious: Yes (Other)
  Sender: FDA-Public Use
  Company Number: PHHY2011US52023

PATIENT
  Sex: Female

DRUGS (1)
  1. GENTEAL [Suspect]
     Dosage: UNK UKN, QD

REACTIONS (1)
  - BLOOD PRESSURE INCREASED [None]
